FAERS Safety Report 17425818 (Version 1)
Quarter: 2020Q1

REPORT INFORMATION
  Report Type: Spontaneous
  Country: US (occurrence: US)
  Receive Date: 20200217
  Receipt Date: 20200217
  Transmission Date: 20200409
  Serious: No
  Sender: FDA-Public Use
  Company Number: NO-AMGEN-NORSP2020017896

PATIENT
  Age: 16 Year

DRUGS (4)
  1. VEDOLIZUMAB [Concomitant]
     Active Substance: VEDOLIZUMAB
     Indication: CROHN^S DISEASE
     Dosage: UNK
  2. ADALIMUMAB [Suspect]
     Active Substance: ADALIMUMAB
     Indication: SMALL INTESTINAL OBSTRUCTION
  3. VEDOLIZUMAB [Concomitant]
     Active Substance: VEDOLIZUMAB
     Indication: SMALL INTESTINAL OBSTRUCTION
  4. ADALIMUMAB [Suspect]
     Active Substance: ADALIMUMAB
     Indication: CROHN^S DISEASE
     Dosage: UNK
     Route: 065

REACTIONS (1)
  - Therapeutic product effect incomplete [Unknown]
